FAERS Safety Report 18736797 (Version 1)
Quarter: 2021Q1

REPORT INFORMATION
  Report Type: Spontaneous
  Country: US (occurrence: US)
  Receive Date: 20210113
  Receipt Date: 20210113
  Transmission Date: 20210419
  Serious: Yes (Hospitalization)
  Sender: FDA-Public Use
  Company Number: US-MYLANLABS-2021M1002002

PATIENT
  Age: 64 Year
  Sex: Female

DRUGS (3)
  1. SODIUM CHLORIDE. [Suspect]
     Active Substance: SODIUM CHLORIDE
     Indication: HYPONATRAEMIA
     Dosage: AS A PART OF PARENTERAL NUTRITION; SODIUM CONTENT WAS INCREASED TO 170MEQ/L
     Route: 065
  2. ARGININE VASOPRESSIN [Concomitant]
     Active Substance: VASOPRESSIN
     Indication: SHOCK
     Dosage: UNK
     Route: 042
  3. FUROSEMIDE. [Suspect]
     Active Substance: FUROSEMIDE
     Indication: HYPONATRAEMIA
     Dosage: 40 MILLIGRAM
     Route: 042

REACTIONS (2)
  - Off label use [Unknown]
  - Drug ineffective [Unknown]
